FAERS Safety Report 5206700-8 (Version None)
Quarter: 2007Q1

REPORT INFORMATION
  Report Type: 
  Country: None (occurrence: None)
  Receive Date: 20070109
  Receipt Date: 20061221
  Transmission Date: 20070707
  Serious: Yes (Other)
  Sender: FDA-Public Use
  Company Number: CHNY2006AU03539

PATIENT
  Age: 68 Year
  Sex: Male

DRUGS (7)
  1. NICOTINE [Suspect]
     Indication: SMOKING CESSATION THERAPY
     Dosage: 14 MG, TRANSDERMAL
     Route: 062
  2. MONODUR (ISOSORBIDE MONONITRATE) [Concomitant]
  3. ATENOLOL [Concomitant]
  4. NEURONTIN [Concomitant]
  5. WARFARIN SODIUM [Concomitant]
  6. TEMAZEPAM [Concomitant]
  7. NITRO-DUR [Concomitant]

REACTIONS (3)
  - ANGINA PECTORIS [None]
  - DYSPNOEA [None]
  - STRESS [None]
